FAERS Safety Report 6476071-8 (Version None)
Quarter: 2009Q4

REPORT INFORMATION
  Report Type: 
  Country: None (occurrence: None)
  Receive Date: 20091204
  Receipt Date: 20091123
  Transmission Date: 20100525
  Serious: Yes (Hospitalization)
  Sender: FDA-Public Use
  Company Number: US-AMGEN-US288167

PATIENT
  Sex: Male

DRUGS (6)
  1. PANITUMUMAB [Suspect]
     Indication: SQUAMOUS CELL CARCINOMA
     Route: 042
     Dates: start: 20080328
  2. CISPLATIN [Suspect]
  3. DOCETAXEL [Suspect]
  4. SYNTHROID [Concomitant]
  5. PHENERGAN HCL [Concomitant]
  6. REGLAN [Concomitant]

REACTIONS (1)
  - PNEUMONIA [None]
